FAERS Safety Report 8607671-4 (Version None)
Quarter: 2012Q3

REPORT INFORMATION
  Report Type: 
  Country: None (occurrence: None)
  Receive Date: 20120821
  Receipt Date: 20120820
  Transmission Date: 20120928
  Serious: Yes (Death, Other)
  Sender: FDA-Public Use
  Company Number: US-ROXANE LABORATORIES, INC.-2012-RO-01737RO

PATIENT
  Sex: Male

DRUGS (3)
  1. REVATIO [Suspect]
     Indication: LUNG DISORDER
     Dosage: 60 MG
     Dates: start: 20111101
  2. COUMADIN [Suspect]
  3. DIGOXIN [Suspect]

REACTIONS (3)
  - COR PULMONALE [None]
  - CHRONIC OBSTRUCTIVE PULMONARY DISEASE [None]
  - DRUG INTERACTION [None]
